FAERS Safety Report 16736118 (Version 2)
Quarter: 2019Q3

REPORT INFORMATION
  Report Type: Spontaneous
  Country: AU (occurrence: AU)
  Receive Date: 20190823
  Receipt Date: 20190917
  Transmission Date: 20191005
  Serious: Yes (Other)
  Sender: FDA-Public Use
  Company Number: AU-APOTEX-2019AP020458

PATIENT
  Age: 56 Year
  Sex: Male

DRUGS (2)
  1. APO-DICLOFENAC [Suspect]
     Active Substance: DICLOFENAC
     Indication: TESTICULAR PAIN
     Dosage: UNK
     Route: 048
  2. PANADOL [Concomitant]
     Active Substance: ACETAMINOPHEN
     Indication: TESTICULAR PAIN
     Dosage: UNK
     Route: 065

REACTIONS (1)
  - Haemorrhage [Recovered/Resolved]

NARRATIVE: CASE EVENT DATE: 20190809
